FAERS Safety Report 14379233 (Version 1)
Quarter: 2018Q1

REPORT INFORMATION
  Report Type: Spontaneous
  Country: US (occurrence: US)
  Receive Date: 20180112
  Receipt Date: 20180112
  Transmission Date: 20180509
  Serious: No
  Sender: FDA-Public Use
  Company Number: US-TEVA-2018-US-844457

PATIENT
  Sex: Female

DRUGS (1)
  1. LEVODOPA [Suspect]
     Active Substance: LEVODOPA
     Dosage: 25 MG / 250 MG
     Route: 065

REACTIONS (1)
  - Drug ineffective [Unknown]
